FAERS Safety Report 8198384-4 (Version None)
Quarter: 2012Q1

REPORT INFORMATION
  Report Type: 
  Country: None (occurrence: None)
  Receive Date: 20120309
  Receipt Date: 20120104
  Transmission Date: 20120608
  Serious: Yes (Hospitalization, Other)
  Sender: FDA-Public Use
  Company Number: US-AMGEN-USASP2012000335

PATIENT
  Sex: Female

DRUGS (5)
  1. AMIODARONE HCL [Concomitant]
     Dosage: UNK
     Dates: start: 20111201
  2. OSCAL                              /00751519/ [Concomitant]
     Dosage: UNK
  3. PROLIA [Suspect]
     Indication: OSTEOPOROSIS POSTMENOPAUSAL
     Dosage: 60 MG, Q6MO
     Dates: start: 20110901
  4. SYNTHROID [Concomitant]
     Indication: HYPOTHYROIDISM
     Dosage: UNK
  5. ATENOLOL [Concomitant]
     Dosage: UNK
     Dates: start: 20110801

REACTIONS (1)
  - ATRIAL FIBRILLATION [None]
